FAERS Safety Report 4300492-2 (Version None)
Quarter: 2004Q1

REPORT INFORMATION
  Report Type: 
  Country: None (occurrence: None)
  Receive Date: 20040219
  Receipt Date: 20040219
  Transmission Date: 20041129
  Serious: Yes (Life-Threatening)
  Sender: FDA-Public Use
  Company Number: None

PATIENT
  Age: 85 Year
  Sex: Male

DRUGS (1)
  1. IRON DEXTRAN [Suspect]
     Dosage: IV DRIP
     Route: 041

REACTIONS (3)
  - ANAPHYLACTIC REACTION [None]
  - CARDIAC ARREST [None]
  - PROCEDURAL COMPLICATION [None]
